FAERS Safety Report 20120727 (Version 1)
Quarter: 2021Q4

REPORT INFORMATION
  Report Type: Spontaneous
  Country: US (occurrence: None)
  Receive Date: 20211126
  Receipt Date: 20211126
  Transmission Date: 20220303
  Serious: Yes (Disabling, Other)
  Sender: FDA-Public Use
  Company Number: None

PATIENT
  Age: 50 Year
  Sex: Female

DRUGS (1)
  1. SECRET ANTIPERSPIRANT POWDER FRESH [Suspect]
     Active Substance: ALUMINUM CHLOROHYDRATE
     Indication: Therapy cessation
     Dosage: FREQUENCY : DAILY;?
     Route: 061
     Dates: start: 20110401, end: 20191112

REACTIONS (1)
  - Mantle cell lymphoma [None]

NARRATIVE: CASE EVENT DATE: 20191111
